FAERS Safety Report 10392071 (Version 2)
Quarter: 2014Q3

REPORT INFORMATION
  Report Type: Report from Study
  Country: BR (occurrence: BR)
  Receive Date: 20140819
  Receipt Date: 20140819
  Transmission Date: 20150326
  Serious: Yes (Other)
  Sender: FDA-Public Use
  Company Number: BR-BIOGENIDEC-2013BI071284

PATIENT
  Age: 42 Year
  Sex: Female

DRUGS (2)
  1. AVONEX [Suspect]
     Active Substance: INTERFERON BETA-1A
     Indication: MULTIPLE SCLEROSIS
     Route: 030
     Dates: start: 20121123, end: 20140623
  2. AVONEX [Suspect]
     Active Substance: INTERFERON BETA-1A
     Indication: MULTIPLE SCLEROSIS
     Route: 030
     Dates: start: 20050710, end: 20121116

REACTIONS (6)
  - Post procedural infection [Unknown]
  - Ill-defined disorder [Unknown]
  - Hypertension [Not Recovered/Not Resolved]
  - Cerebrovascular accident [Unknown]
  - Multiple sclerosis relapse [Not Recovered/Not Resolved]
  - Benign breast neoplasm [Unknown]

NARRATIVE: CASE EVENT DATE: 20130727
